FAERS Safety Report 25076239 (Version 5)
Quarter: 2025Q2

REPORT INFORMATION
  Report Type: Report from Study
  Country: BR (occurrence: BR)
  Receive Date: 20250313
  Receipt Date: 20250627
  Transmission Date: 20250717
  Serious: Yes (Death, Life-Threatening, Hospitalization)
  Sender: ABBVIE
  Company Number: BR-JNJFOC-20250322563

PATIENT
  Age: 64 Year
  Sex: Male
  Weight: 75.5 kg

DRUGS (1)
  1. IMBRUVICA [Suspect]
     Active Substance: IBRUTINIB
     Indication: Chronic lymphocytic leukaemia
     Route: 048
     Dates: start: 20240126, end: 20250219

REACTIONS (2)
  - Septic shock [Fatal]
  - Tumour lysis syndrome [Recovering/Resolving]

NARRATIVE: CASE EVENT DATE: 20250224
